FAERS Safety Report 22212558 (Version 1)
Quarter: 2023Q2

REPORT INFORMATION
  Report Type: Spontaneous
  Country: US (occurrence: None)
  Receive Date: 20230414
  Receipt Date: 20230414
  Transmission Date: 20230722
  Serious: Yes (Other)
  Sender: FDA-Public Use
  Company Number: None

PATIENT
  Age: 58 Year
  Sex: Male
  Weight: 99 kg

DRUGS (1)
  1. ERYTHROMYCIN [Suspect]
     Active Substance: ERYTHROMYCIN
     Indication: Hordeolum

REACTIONS (6)
  - Application site pain [None]
  - Eyelid irritation [None]
  - Eyelid pain [None]
  - Eyelid bleeding [None]
  - Eye irritation [None]
  - Eyelid scar [None]

NARRATIVE: CASE EVENT DATE: 20220728
